FAERS Safety Report 20430449 (Version 1)
Quarter: 2022Q1

REPORT INFORMATION
  Report Type: Report from Study
  Country: FR (occurrence: FR)
  Receive Date: 20220204
  Receipt Date: 20220204
  Transmission Date: 20220424
  Serious: Yes (Hospitalization)
  Sender: FDA-Public Use
  Company Number: FR-SERVIER-S20008562

PATIENT

DRUGS (9)
  1. ONCASPAR [Suspect]
     Active Substance: PEGASPARGASE
     Indication: Acute lymphocytic leukaemia
     Dosage: 1950 IU, QD, D15
     Route: 042
     Dates: start: 20200819, end: 20200819
  2. TN UNSPECIFIED [Concomitant]
     Indication: Acute lymphocytic leukaemia
     Dosage: 1570 MG, D1
     Route: 042
     Dates: start: 20200728
  3. TN UNSPECIFIED [Concomitant]
     Indication: Acute lymphocytic leukaemia
     Dosage: 117.5 MG, D3-D6
     Route: 042
     Dates: start: 20200730, end: 20200802
  4. TN UNSPECIFIED [Concomitant]
     Dosage: 30 MG, D3
     Route: 037
     Dates: start: 20200730
  5. TN UNSPECIFIED [Concomitant]
     Dosage: 117.5 MG, D10-D13
     Route: 042
     Dates: start: 20200806, end: 20200809
  6. TN UNSPECIFIED [Concomitant]
     Indication: Acute lymphocytic leukaemia
     Dosage: 15 MG, D3
     Route: 037
     Dates: start: 20200730
  7. TN UNSPECIFIED [Concomitant]
     Indication: Acute lymphocytic leukaemia
     Dosage: 15 MG, D3
     Route: 037
     Dates: start: 20200730
  8. TN UNSPECIFIED [Concomitant]
     Indication: Acute lymphocytic leukaemia
     Dosage: 2 MG, D15
     Route: 042
     Dates: start: 20200819
  9. TN UNSPECIFIED [Concomitant]
     Indication: Acute lymphocytic leukaemia
     Dosage: UNK, D1-D14
     Route: 048
     Dates: start: 20200728, end: 20200810

REACTIONS (2)
  - Abdominal pain [Recovered/Resolved]
  - Sepsis [Recovered/Resolved]

NARRATIVE: CASE EVENT DATE: 20200811
